FAERS Safety Report 23288490 (Version 1)
Quarter: 2023Q4

REPORT INFORMATION
  Report Type: Spontaneous
  Country: US (occurrence: US)
  Receive Date: 20231212
  Receipt Date: 20231212
  Transmission Date: 20240110
  Serious: Yes (Hospitalization, Other)
  Sender: FDA-Public Use
  Company Number: US-HIKMA PHARMACEUTICALS USA INC.-US-H14001-23-67633

PATIENT
  Age: 81 Year
  Sex: Male

DRUGS (1)
  1. VALPROATE [Suspect]
     Active Substance: VALPROIC ACID
     Indication: Bipolar disorder
     Dosage: UNKNOWN
     Route: 065

REACTIONS (3)
  - Acidosis hyperchloraemic [Recovered/Resolved]
  - Metabolic acidosis [Recovered/Resolved]
  - Fanconi syndrome [Recovered/Resolved]
